FAERS Safety Report 16453034 (Version 2)
Quarter: 2020Q4

REPORT INFORMATION
  Report Type: Report from Study
  Country: US (occurrence: US)
  Receive Date: 20190619
  Receipt Date: 20201206
  Transmission Date: 20210113
  Serious: Yes (Other)
  Sender: FDA-Public Use
  Company Number: US-SA-2019SA161070

PATIENT

DRUGS (2)
  1. ALEMTUZUMAB [Suspect]
     Active Substance: ALEMTUZUMAB
     Indication: MULTIPLE SCLEROSIS
     Dosage: 12 MG, QD
     Route: 042
     Dates: start: 20181022, end: 20181026
  2. ALEMTUZUMAB [Suspect]
     Active Substance: ALEMTUZUMAB
     Dosage: 12 MG, QD
     Route: 042
     Dates: start: 20191028, end: 20191030

REACTIONS (6)
  - Sinus disorder [Unknown]
  - Blood phosphorus increased [Not Recovered/Not Resolved]
  - Headache [Not Recovered/Not Resolved]
  - Thyroid cancer [Recovered/Resolved]
  - Blood calcium decreased [Not Recovered/Not Resolved]
  - Ulcer [Unknown]

NARRATIVE: CASE EVENT DATE: 20190611
